FAERS Safety Report 18479603 (Version 4)
Quarter: 2020Q4

REPORT INFORMATION
  Report Type: Spontaneous
  Country: US (occurrence: US)
  Receive Date: 20201109
  Receipt Date: 20201228
  Transmission Date: 20210114
  Serious: Yes (Other)
  Sender: FDA-Public Use
  Company Number: US-SA-2020SA310298

PATIENT

DRUGS (3)
  1. NOVOLOG [Concomitant]
     Active Substance: INSULIN ASPART
     Dosage: UNK
     Route: 065
  2. TOUJEO MAX [Suspect]
     Active Substance: INSULIN GLARGINE
     Dosage: 26-36 UNITS EACH DAY
     Route: 065
  3. TOUJEO MAX [Suspect]
     Active Substance: INSULIN GLARGINE
     Indication: TYPE 1 DIABETES MELLITUS
     Dosage: UNK
     Route: 065

REACTIONS (7)
  - Drug ineffective [Recovering/Resolving]
  - Diabetes mellitus inadequate control [Recovered/Resolved]
  - Blood glucose increased [Recovering/Resolving]
  - Product storage error [Unknown]
  - Glycosylated haemoglobin abnormal [Unknown]
  - Visual impairment [Unknown]
  - Product quality issue [Recovered/Resolved]
